FAERS Safety Report 25990779 (Version 1)
Quarter: 2025Q4

REPORT INFORMATION
  Report Type: Spontaneous
  Country: CN (occurrence: CN)
  Receive Date: 20251103
  Receipt Date: 20251103
  Transmission Date: 20260117
  Serious: Yes (Other)
  Sender: TEVA
  Company Number: CN-TEVA-VS-3387947

PATIENT
  Age: 66 Year
  Sex: Female
  Weight: 55 kg

DRUGS (4)
  1. BENDAMUSTINE [Suspect]
     Active Substance: BENDAMUSTINE
     Indication: Malignant splenic neoplasm
     Dosage: INTRAVENOUS DRIP, 100 MG+NS 500 ML QD IV.DRIP D1-2, MEDICATION-DAYS: 1
     Route: 065
     Dates: start: 20250923, end: 20250924
  2. OBINUTUZUMAB [Suspect]
     Active Substance: OBINUTUZUMAB
     Indication: Malignant splenic neoplasm
     Dosage: INTRAVENOUS DRIP, 1000 MG+ NS 250 ML, QD D1, 8, 15, MEDICATION-DAYS: 7
     Route: 065
     Dates: start: 20250923, end: 20251013
  3. SODIUM CHLORIDE [Concomitant]
     Active Substance: SODIUM CHLORIDE
     Indication: Vehicle solution use
     Dosage: INTRAVENOUS DRIP, MEDICATION-DAYS:1
     Dates: start: 20250923, end: 20250924
  4. SODIUM CHLORIDE [Concomitant]
     Active Substance: SODIUM CHLORIDE
     Indication: Vehicle solution use
     Dosage: INTRAVENOUS DRIP, MEDICATION-DAYS: 7
     Dates: start: 20250923, end: 20251013

REACTIONS (1)
  - Myelosuppression [Recovering/Resolving]

NARRATIVE: CASE EVENT DATE: 20251009
